FAERS Safety Report 4462085-6 (Version None)
Quarter: 2004Q3

REPORT INFORMATION
  Report Type: 
  Country: None (occurrence: None)
  Receive Date: 20040927
  Receipt Date: 20040927
  Transmission Date: 20050211
  Serious: No
  Sender: FDA-Public Use
  Company Number: None

PATIENT
  Sex: Female
  Weight: 91.6266 kg

DRUGS (10)
  1. HUMIRA [Suspect]
     Indication: RHEUMATOID ARTHRITIS
     Dosage: SEE IMAGE
     Dates: start: 20030514
  2. AZULFIDINE [Concomitant]
  3. NEXIUM [Concomitant]
  4. INSULIN [Concomitant]
  5. ASPIRIN [Concomitant]
  6. NORVASC [Concomitant]
  7. METOPROLOL [Concomitant]
  8. AVAPRO [Concomitant]
  9. K-DUR 10 [Concomitant]
  10. FUROSEMIDE [Concomitant]

REACTIONS (2)
  - HYPERVISCOSITY SYNDROME [None]
  - VISION BLURRED [None]
